FAERS Safety Report 4775100-7 (Version None)
Quarter: 2005Q3

REPORT INFORMATION
  Report Type: 
  Country: None (occurrence: None)
  Receive Date: 20050920
  Receipt Date: 20050915
  Transmission Date: 20060218
  Serious: Yes (Hospitalization)
  Sender: FDA-Public Use
  Company Number: SEWYE987219SEP05

PATIENT
  Age: 30 Year
  Sex: Female

DRUGS (3)
  1. EFFEXOR [Suspect]
     Indication: ATTENTION DEFICIT/HYPERACTIVITY DISORDER
     Dosage: 75 MG 1X PER 1 DAY
     Route: 048
     Dates: start: 20040101, end: 20050401
  2. BURONIL (MELPERONE HYDROCHLORIDE) [Suspect]
     Dosage: 10 MG 1X PER 1 DAY
     Route: 048
     Dates: start: 20040101, end: 20050401
  3. CONCERTA (METHYLPHENIDATE) [Suspect]
     Indication: ATTENTION DEFICIT/HYPERACTIVITY DISORDER
     Dosage: 54 MG 1X PER 1 DAY
     Route: 048
     Dates: start: 20040801, end: 20050405

REACTIONS (2)
  - CARDIAC FAILURE [None]
  - CARDIOMYOPATHY [None]
